FAERS Safety Report 7935613-3 (Version None)
Quarter: 2011Q4

REPORT INFORMATION
  Report Type: 
  Country: None (occurrence: None)
  Receive Date: 20111123
  Receipt Date: 20111110
  Transmission Date: 20120403
  Serious: Yes (Hospitalization, Other)
  Sender: FDA-Public Use
  Company Number: PL-ELI_LILLY_AND_COMPANY-PL201111000884

PATIENT
  Age: 45 Year
  Sex: Male

DRUGS (2)
  1. OLANZAPINE [Suspect]
     Dosage: 600 MG, UNK
  2. OLANZAPINE [Suspect]
     Dosage: UNK UNK, UNKNOWN

REACTIONS (6)
  - OVERDOSE [None]
  - ASPARTATE AMINOTRANSFERASE INCREASED [None]
  - THROMBOCYTOPENIA [None]
  - HYPONATRAEMIA [None]
  - VOMITING [None]
  - ALANINE AMINOTRANSFERASE INCREASED [None]
